FAERS Safety Report 10540750 (Version 1)
Quarter: 2014Q4

REPORT INFORMATION
  Report Type: Spontaneous
  Country: US (occurrence: US)
  Receive Date: 20141024
  Receipt Date: 20141024
  Transmission Date: 20150529
  Serious: Yes (Other)
  Sender: FDA-Public Use
  Company Number: US-ASTRAZENECA-2014SE79428

PATIENT
  Sex: Female

DRUGS (2)
  1. ARIMIDEX [Suspect]
     Active Substance: ANASTROZOLE
     Route: 048
  2. AROMASIN [Concomitant]
     Active Substance: EXEMESTANE

REACTIONS (3)
  - Throat tightness [Unknown]
  - Drug hypersensitivity [Unknown]
  - Anaphylactic reaction [Unknown]
